FAERS Safety Report 19472693 (Version 1)
Quarter: 2021Q2

REPORT INFORMATION
  Report Type: Spontaneous
  Country: US (occurrence: US)
  Receive Date: 20210629
  Receipt Date: 20210629
  Transmission Date: 20210717
  Serious: No
  Sender: FDA-Public Use
  Company Number: US-CANTON LABORATORIES, LLC-2113254

PATIENT
  Age: 53 Year
  Sex: Female

DRUGS (1)
  1. NAPROSYN [Suspect]
     Active Substance: NAPROXEN
     Indication: MIGRAINE
     Route: 048

REACTIONS (1)
  - Abdominal pain upper [Unknown]
